FAERS Safety Report 9738437 (Version 1)
Quarter: 2013Q4

REPORT INFORMATION
  Report Type: Spontaneous
  Country: IT (occurrence: IT)
  Receive Date: 20131208
  Receipt Date: 20131208
  Transmission Date: 20140711
  Serious: Yes (Hospitalization)
  Sender: FDA-Public Use
  Company Number: IT-ROCHE-1313491

PATIENT
  Age: 63 Year
  Sex: Male
  Weight: 70 kg

DRUGS (5)
  1. PEGASYS [Suspect]
     Indication: CHRONIC HEPATITIS C
     Route: 058
     Dates: start: 20130925, end: 20131109
  2. COPEGUS [Suspect]
     Indication: CHRONIC HEPATITIS C
     Route: 048
     Dates: start: 20130925, end: 20131109
  3. INCIVO [Suspect]
     Indication: CHRONIC HEPATITIS C
     Route: 048
     Dates: start: 20130925, end: 20131109
  4. PANTOPRAZOLE [Concomitant]
     Route: 048
     Dates: start: 20130925, end: 20131125
  5. TACHIPIRINA [Concomitant]
     Route: 048
     Dates: start: 20130925, end: 20131125

REACTIONS (3)
  - Anaemia [Recovering/Resolving]
  - Delusion [Recovering/Resolving]
  - Conduct disorder [Recovering/Resolving]
